FAERS Safety Report 8312888-2 (Version None)
Quarter: 2012Q2

REPORT INFORMATION
  Report Type: 
  Country: None (occurrence: None)
  Receive Date: 20120426
  Receipt Date: 20120418
  Transmission Date: 20120825
  Serious: Yes (Other)
  Sender: FDA-Public Use
  Company Number: US-BAYER-2011-075039

PATIENT
  Age: 21 Year
  Sex: Female
  Weight: 87.528 kg

DRUGS (7)
  1. YAZ [Suspect]
     Route: 048
  2. CLARITHROMYCIN [Concomitant]
     Dosage: 500 MG, UNK
     Dates: start: 20071113
  3. HYDO-DP [Concomitant]
     Dosage: UNK
     Dates: start: 20071113
  4. AMOXICILLIN [Concomitant]
     Dosage: 500 MG, UNK
     Dates: start: 20071025
  5. GUAIFENESIN [Concomitant]
     Dosage: UNK
     Dates: start: 20071113
  6. TRIAZOLAM [Concomitant]
     Dosage: 0.25 MG, UNK
     Dates: start: 20071025
  7. YASMIN [Suspect]
     Route: 048

REACTIONS (3)
  - INJURY [None]
  - THROMBOSIS [None]
  - PAIN [None]
